FAERS Safety Report 9282120 (Version 1)
Quarter: 2013Q2

REPORT INFORMATION
  Report Type: Spontaneous
  Country: US (occurrence: None)
  Receive Date: 20130508
  Receipt Date: 20130508
  Transmission Date: 20140414
  Serious: Yes (Other)
  Sender: FDA-Public Use
  Company Number: None

PATIENT
  Age: 61 Year
  Sex: Male
  Weight: 88.7 kg

DRUGS (13)
  1. COLISTIMETHATE [Suspect]
     Indication: PSEUDOMONAS INFECTION
     Dosage: Q8
     Route: 042
     Dates: start: 20110224, end: 20110228
  2. BACITRACIN/POLYMIXIN [Concomitant]
  3. CEFEPIME [Concomitant]
  4. DOCUSATE [Concomitant]
  5. EMOLIENT TOPICAL CREAM [Concomitant]
  6. FENTANYL [Concomitant]
  7. FERROUS SULFATE [Concomitant]
  8. FOLIC ACID [Concomitant]
  9. HYDRALAZINE [Concomitant]
  10. HYDROCORTISONE [Concomitant]
  11. KETOCONAZOLE [Concomitant]
  12. LACTOBACILLUS [Concomitant]
  13. LEVETIRACETAM [Concomitant]

REACTIONS (2)
  - Blood urea increased [None]
  - Blood creatinine increased [None]
